FAERS Safety Report 11800344 (Version 2)
Quarter: 2016Q1

REPORT INFORMATION
  Report Type: Spontaneous
  Country: FR (occurrence: FR)
  Receive Date: 20151203
  Receipt Date: 20160303
  Transmission Date: 20160525
  Serious: Yes (Life-Threatening)
  Sender: FDA-Public Use
  Company Number: FR-009507513-1511FRA014224

PATIENT
  Age: 82 Year
  Sex: Male
  Weight: 126 kg

DRUGS (3)
  1. FIDAXOMICIN [Suspect]
     Active Substance: FIDAXOMICIN
     Indication: CLOSTRIDIUM DIFFICILE INFECTION
     Dosage: 200 MG, BID
     Route: 048
     Dates: start: 20150903, end: 20150912
  2. OMEPRAZOLE. [Concomitant]
     Active Substance: OMEPRAZOLE
     Indication: DUODENITIS
     Dosage: 20 MG, QD
     Route: 048
     Dates: start: 201503
  3. FIDAXOMICIN [Suspect]
     Active Substance: FIDAXOMICIN
     Dosage: 200 MG, BID
     Route: 048
     Dates: start: 20150718, end: 20150728

REACTIONS (2)
  - Peritonitis [Unknown]
  - Large intestine perforation [Unknown]

NARRATIVE: CASE EVENT DATE: 20150913
